FAERS Safety Report 6764925-4 (Version None)
Quarter: 2010Q2

REPORT INFORMATION
  Report Type: 
  Country: None (occurrence: None)
  Receive Date: 20100609
  Receipt Date: 20100511
  Transmission Date: 20101027
  Serious: No
  Sender: FDA-Public Use
  Company Number: 2010012391

PATIENT
  Age: 3 Month
  Sex: Male

DRUGS (3)
  1. CHILDREN'S ZYRTEC ALLERGY [Suspect]
     Indication: URTICARIA PIGMENTOSA
     Dosage: 7.5ML ONCE DAILY, ORAL
     Route: 048
  2. CHILDREN'S BENADRYL ALLERGY [Suspect]
     Indication: URTICARIA PIGMENTOSA
  3. ACETAMINOPHEN [Concomitant]

REACTIONS (4)
  - OFF LABEL USE [None]
  - OVERDOSE [None]
  - PRODUCT QUALITY ISSUE [None]
  - WRONG DRUG ADMINISTERED [None]
